FAERS Safety Report 5363454-2 (Version None)
Quarter: 2007Q2

REPORT INFORMATION
  Report Type: 
  Country: None (occurrence: None)
  Receive Date: 20070530
  Receipt Date: 20070221
  Transmission Date: 20071010
  Serious: No
  Sender: FDA-Public Use
  Company Number: 2006PV025007

PATIENT
  Age: 58 Year
  Sex: Female
  Weight: 97.5234 kg

DRUGS (13)
  1. BYETTA [Suspect]
     Indication: DIABETES MELLITUS NON-INSULIN-DEPENDENT
     Dosage: 5 MCB;BID;SC ; 10 MCG;BID;SC ; 5 MCG;BID;SC
     Route: 058
     Dates: start: 20061020, end: 20060101
  2. BYETTA [Suspect]
     Indication: DIABETES MELLITUS NON-INSULIN-DEPENDENT
     Dosage: 5 MCB;BID;SC ; 10 MCG;BID;SC ; 5 MCG;BID;SC
     Route: 058
     Dates: start: 20060918, end: 20061019
  3. AVANDIA [Concomitant]
  4. HUMALOG [Concomitant]
  5. METFORMIN HCL [Concomitant]
  6. ASPIRIN [Concomitant]
  7. NEXIUM [Concomitant]
  8. LIPITOR [Concomitant]
  9. CADUET [Concomitant]
  10. ALTACE [Concomitant]
  11. WELLBUTRIN XL [Concomitant]
  12. TRIAMTERINE [Concomitant]
  13. LEVOTHYROXINE SODIUM [Concomitant]

REACTIONS (1)
  - VOCAL CORD DISORDER [None]
